FAERS Safety Report 7373728-1 (Version None)
Quarter: 2011Q1

REPORT INFORMATION
  Report Type: 
  Country: None (occurrence: None)
  Receive Date: 20110325
  Receipt Date: 20110315
  Transmission Date: 20110831
  Serious: Yes (Hospitalization)
  Sender: FDA-Public Use
  Company Number: US-JNJFOC-20101002049

PATIENT
  Sex: Male
  Weight: 56.25 kg

DRUGS (13)
  1. DURAGESIC MATRIX [Suspect]
     Dosage: 25 UG/HR 12.5UG/HR
     Route: 062
  2. DURAGESIC MATRIX [Suspect]
     Indication: MUSCULOSKELETAL PAIN
     Dosage: 25 UG/HR 12.5UG/HR
     Route: 062
  3. DURAGESIC MATRIX [Suspect]
     Indication: BACK PAIN
     Dosage: 25 UG/HR 12.5UG/HR
     Route: 062
  4. DURAGESIC MATRIX [Suspect]
     Route: 062
  5. DURAGESIC MATRIX [Suspect]
     Indication: NECK PAIN
     Dosage: 25 UG/HR 12.5UG/HR
     Route: 062
  6. VALSARTAN [Concomitant]
     Indication: HYPERTENSION
     Route: 048
  7. ALLEGRA [Concomitant]
     Indication: SEASONAL ALLERGY
     Route: 048
  8. DURAGESIC MATRIX [Suspect]
     Indication: PAIN
     Route: 062
  9. DURAGESIC MATRIX [Suspect]
     Route: 062
  10. DURAGESIC MATRIX [Suspect]
     Route: 062
  11. UNKNOWN MEDICATION [Concomitant]
     Route: 065
  12. VALIUM [Concomitant]
     Indication: MUSCLE RELAXANT THERAPY
     Route: 048
  13. PREVACID [Concomitant]
     Indication: GASTROOESOPHAGEAL REFLUX DISEASE
     Route: 048

REACTIONS (5)
  - DEPRESSION [None]
  - PAIN [None]
  - PRODUCT ADHESION ISSUE [None]
  - INFLAMMATION [None]
  - INSOMNIA [None]
